FAERS Safety Report 18815602 (Version 2)
Quarter: 2021Q2

REPORT INFORMATION
  Report Type: Spontaneous
  Country: US (occurrence: US)
  Receive Date: 20210201
  Receipt Date: 20210514
  Transmission Date: 20210717
  Serious: Yes (Other)
  Sender: FDA-Public Use
  Company Number: US-GLAXOSMITHKLINE-US2021GSK023253

PATIENT
  Sex: Female

DRUGS (12)
  1. RANITIDINE CAPSULE [Suspect]
     Active Substance: RANITIDINE
     Dosage: 75 MG BOTH
     Dates: start: 200301, end: 200501
  2. ZANTAC [Suspect]
     Active Substance: RANITIDINE HYDROCHLORIDE
     Indication: DYSPEPSIA
     Dosage: 75 MG BOTH
     Dates: start: 200301, end: 200501
  3. RANITIDINE CAPSULE [Suspect]
     Active Substance: RANITIDINE
     Dosage: 150 MG, QD
     Dates: start: 200301, end: 200501
  4. ZANTAC [Suspect]
     Active Substance: RANITIDINE HYDROCHLORIDE
     Indication: DYSPEPSIA
     Dosage: 75 MG BOTH
     Dates: start: 200301, end: 200501
  5. ZANTAC [Suspect]
     Active Substance: RANITIDINE HYDROCHLORIDE
     Indication: DYSPEPSIA
     Dosage: 75 MG BOTH
     Dates: start: 200301, end: 200501
  6. ZANTAC [Suspect]
     Active Substance: RANITIDINE HYDROCHLORIDE
     Dosage: 150 MG, QD
     Dates: start: 200301, end: 200501
  7. ZANTAC [Suspect]
     Active Substance: RANITIDINE HYDROCHLORIDE
     Dosage: 75 MG BOTH
     Dates: start: 200301, end: 200501
  8. ZANTAC [Suspect]
     Active Substance: RANITIDINE HYDROCHLORIDE
     Dosage: UNK
  9. ZANTAC [Suspect]
     Active Substance: RANITIDINE HYDROCHLORIDE
     Dosage: 150 MG, QD
     Dates: start: 200301, end: 200501
  10. RANITIDINE CAPSULE [Suspect]
     Active Substance: RANITIDINE
     Indication: DYSPEPSIA
     Dosage: 75 MG BOTH
     Dates: start: 200301, end: 200501
  11. ZANTAC [Suspect]
     Active Substance: RANITIDINE HYDROCHLORIDE
     Dosage: 75 MG BOTH
     Dates: start: 200301, end: 200501
  12. ZANTAC [Suspect]
     Active Substance: RANITIDINE HYDROCHLORIDE
     Dosage: 150 MG, QD
     Dates: start: 200301, end: 200501

REACTIONS (1)
  - Gastric cancer [Unknown]
